FAERS Safety Report 8495167-2 (Version None)
Quarter: 2012Q3

REPORT INFORMATION
  Report Type: 
  Country: None (occurrence: None)
  Receive Date: 20120709
  Receipt Date: 20120628
  Transmission Date: 20120928
  Serious: Yes (Other)
  Sender: FDA-Public Use
  Company Number: US-US-EMD SERONO, INC.-7144205

PATIENT
  Age: 9 Year
  Sex: Female

DRUGS (5)
  1. VITAMIN D [Concomitant]
     Indication: PSEUDOHYPOPARATHYROIDISM
  2. CALCITRIOL [Concomitant]
     Indication: PSEUDOHYPOPARATHYROIDISM
  3. SAIZEN [Suspect]
     Indication: GROWTH RETARDATION
     Dates: start: 20081226
  4. LEVOTHYROXINE SODIUM [Concomitant]
     Indication: PSEUDOHYPOPARATHYROIDISM
  5. CALCIUM [Concomitant]
     Indication: PSEUDOHYPOPARATHYROIDISM

REACTIONS (1)
  - OPTIC ATROPHY [None]
